FAERS Safety Report 11146380 (Version 2)
Quarter: 2015Q2

REPORT INFORMATION
  Report Type: Spontaneous
  Country: IT (occurrence: IT)
  Receive Date: 20150528
  Receipt Date: 20150609
  Transmission Date: 20150821
  Serious: Yes (Life-Threatening)
  Sender: FDA-Public Use
  Company Number: IT-PFIZER INC-2015174787

PATIENT
  Age: 59 Year
  Sex: Female

DRUGS (8)
  1. TORVAST [Suspect]
     Active Substance: ATORVASTATIN
     Indication: HYPERCHOLESTEROLAEMIA
     Dosage: 300 MG, TOTAL
     Route: 048
     Dates: start: 20150512, end: 20150512
  2. LOBIVON [Suspect]
     Active Substance: NEBIVOLOL HYDROCHLORIDE
     Indication: ESSENTIAL HYPERTENSION
     Dosage: 70 MG, TOTAL
     Route: 048
     Dates: start: 20150512, end: 20150512
  3. XANAX [Concomitant]
     Active Substance: ALPRAZOLAM
     Indication: ANXIETY
     Dosage: 0.75 MG, UNK
     Route: 048
  4. SAMYR [Concomitant]
     Active Substance: METHIONINE
     Indication: DEPRESSION
     Dosage: 400 MG, UNK
     Route: 030
  5. LAMICTAL [Suspect]
     Active Substance: LAMOTRIGINE
     Indication: EPILEPSY
     Dosage: 4200 MG, TOTAL
     Route: 048
     Dates: start: 20150512, end: 20150512
  6. NORITREN [Suspect]
     Active Substance: NORTRIPTYLINE HYDROCHLORIDE
     Indication: DEPRESSION
     Dosage: 750 MG, TOTAL
     Route: 048
     Dates: start: 20150512, end: 20150512
  7. SURMONTIL [Suspect]
     Active Substance: TRIMIPRAMINE MALEATE
     Indication: DEPRESSION
     Dosage: 625 MG, TOTAL
     Route: 048
     Dates: start: 20150512, end: 20150512
  8. PROZAC [Suspect]
     Active Substance: FLUOXETINE HYDROCHLORIDE
     Indication: DEPRESSION
     Dosage: 280 MG, TOTAL
     Route: 048
     Dates: start: 20150512, end: 20150512

REACTIONS (5)
  - Hypotension [Recovering/Resolving]
  - Traumatic coma [Recovering/Resolving]
  - Overdose [Recovering/Resolving]
  - Suicide attempt [Recovering/Resolving]
  - Miosis [Recovering/Resolving]
